FAERS Safety Report 7609124-9 (Version None)
Quarter: 2011Q3

REPORT INFORMATION
  Report Type: 
  Country: None (occurrence: None)
  Receive Date: 20110714
  Receipt Date: 20110705
  Transmission Date: 20111222
  Serious: Yes (Other)
  Sender: FDA-Public Use
  Company Number: PT-JNJFOC-20110701208

PATIENT
  Age: 46 Year
  Sex: Male

DRUGS (5)
  1. CYCLOSPORINE [Suspect]
     Indication: PSORIASIS
  2. ACITRETIN [Concomitant]
     Indication: PSORIASIS
     Dates: end: 20110627
  3. STELARA [Suspect]
     Indication: PSORIASIS
     Route: 058
     Dates: start: 20110627
  4. CYCLOSPORINE [Suspect]
     Dates: end: 20110702
  5. ADALAT [Concomitant]
     Indication: HYPERTENSION
     Route: 048

REACTIONS (1)
  - DERMATITIS EXFOLIATIVE [None]
